FAERS Safety Report 13490001 (Version 1)
Quarter: 2017Q2

REPORT INFORMATION
  Report Type: Spontaneous
  Country: US (occurrence: US)
  Receive Date: 20170427
  Receipt Date: 20170427
  Transmission Date: 20170830
  Serious: Yes (Disabling, Other)
  Sender: FDA-Public Use
  Company Number: None

PATIENT
  Age: 52 Year
  Sex: Female
  Weight: 101.2 kg

DRUGS (6)
  1. VITAMIN B12 [Concomitant]
     Active Substance: CYANOCOBALAMIN
  2. VITAMIN D [Concomitant]
     Active Substance: CHOLECALCIFEROL
  3. DIAMOX SEQUELS [Concomitant]
     Active Substance: ACETAZOLAMIDE
  4. GILENYA [Suspect]
     Active Substance: FINGOLIMOD HYDROCHLORIDE
     Indication: MULTIPLE SCLEROSIS
     Dosage: ?          QUANTITY:1 CAPSULE(S);?
     Route: 048
     Dates: start: 20160822
  5. MULTI VITAMIN [Concomitant]
     Active Substance: VITAMINS
  6. LOW DOSE ASPRIN [Concomitant]
     Active Substance: ASPIRIN

REACTIONS (4)
  - Lymphocyte count decreased [None]
  - Rash [None]
  - Eczema [None]
  - Malignant melanoma in situ [None]

NARRATIVE: CASE EVENT DATE: 20170217
